FAERS Safety Report 4884942-9 (Version None)
Quarter: 2006Q1

REPORT INFORMATION
  Report Type: 
  Country: None (occurrence: None)
  Receive Date: 20060117
  Receipt Date: 20060105
  Transmission Date: 20060701
  Serious: Yes (Other)
  Sender: FDA-Public Use
  Company Number: 2006004402

PATIENT
  Sex: Male

DRUGS (1)
  1. LIPITOR [Suspect]
     Indication: ILL-DEFINED DISORDER
     Dosage: (40 MG, UNKNOWN); ORAL
     Route: 048

REACTIONS (3)
  - ASTHENIA [None]
  - BLADDER CANCER RECURRENT [None]
  - BLOOD CREATINE PHOSPHOKINASE INCREASED [None]
